FAERS Safety Report 17880306 (Version 1)
Quarter: 2020Q2

REPORT INFORMATION
  Report Type: Spontaneous
  Country: US (occurrence: US)
  Receive Date: 20200610
  Receipt Date: 20200610
  Transmission Date: 20200714
  Serious: No
  Sender: FDA-Public Use
  Company Number: None

PATIENT
  Age: 49 Year
  Sex: Female
  Weight: 112.5 kg

DRUGS (1)
  1. BUPRENORPHINE TRANSDERMAL SYSTEM [Suspect]
     Active Substance: BUPRENORPHINE
     Indication: PAIN
     Dosage: ?          QUANTITY:1 PATCH(ES);OTHER FREQUENCY:WEEKLY- CONSTANT;?
     Route: 062

REACTIONS (3)
  - Withdrawal syndrome [None]
  - Device adhesion issue [None]
  - Product substitution issue [None]

NARRATIVE: CASE EVENT DATE: 20200610
